FAERS Safety Report 10708495 (Version 2)
Quarter: 2015Q1

REPORT INFORMATION
  Report Type: Report from Study
  Country: TR (occurrence: TR)
  Receive Date: 20150113
  Receipt Date: 20150303
  Transmission Date: 20150721
  Serious: Yes (Death, Hospitalization)
  Sender: FDA-Public Use
  Company Number: TR-BAXTER-2015BAX001330

PATIENT
  Age: 6 Year
  Sex: Male
  Weight: 23 kg

DRUGS (1)
  1. ADVATE [Suspect]
     Active Substance: ANTIHEMOPHILIC FACTOR, HUMAN RECOMBINANT
     Indication: HAEMOPHILIA
     Route: 065
     Dates: start: 20141225, end: 20141225

REACTIONS (3)
  - Abdominal pain upper [Unknown]
  - Sepsis [Unknown]
  - Death [Fatal]

NARRATIVE: CASE EVENT DATE: 20141227
